FAERS Safety Report 26046377 (Version 1)
Quarter: 2025Q4

REPORT INFORMATION
  Report Type: Spontaneous
  Country: CN (occurrence: CN)
  Receive Date: 20251114
  Receipt Date: 20251114
  Transmission Date: 20260118
  Serious: Yes (Life-Threatening, Hospitalization, Other)
  Sender: BAYER HEALTHCARE PHARMACEUTICALS INC.
  Company Number: CN-BAYER-2025A150868

PATIENT
  Age: 30 Year
  Sex: Female

DRUGS (2)
  1. GADOBUTROL [Suspect]
     Active Substance: GADOBUTROL
     Indication: Magnetic resonance imaging head
     Dosage: 15 ML, ONCE
     Route: 041
     Dates: start: 20251030, end: 20251030
  2. GADOBUTROL [Suspect]
     Active Substance: GADOBUTROL
     Indication: Polycystic ovarian syndrome

REACTIONS (15)
  - Cardiac failure acute [Recovering/Resolving]
  - Left ventricular dysfunction [None]
  - Oxygen saturation decreased [None]
  - Blood pressure diastolic increased [Recovered/Resolved]
  - Contrast media allergy [None]
  - Dyspnoea [Recovered/Resolved]
  - Feeling cold [None]
  - Heart rate increased [Recovered/Resolved]
  - Respiratory rate increased [Recovered/Resolved]
  - Dizziness [None]
  - Vomiting [None]
  - Palpitations [None]
  - Tachypnoea [None]
  - Pyrexia [Recovered/Resolved]
  - Incorrect drug administration rate [None]

NARRATIVE: CASE EVENT DATE: 20251030
